FAERS Safety Report 24991474 (Version 1)
Quarter: 2025Q1

REPORT INFORMATION
  Report Type: Spontaneous
  Country: US (occurrence: US)
  Receive Date: 20250220
  Receipt Date: 20250220
  Transmission Date: 20250408
  Serious: No
  Sender: ARCUTIS
  Company Number: US-ARCUTIS BIOTHERAPEUTICS INC-2025AER000049

PATIENT

DRUGS (2)
  1. ZORYVE [Suspect]
     Active Substance: ROFLUMILAST
     Indication: Eczema
     Route: 061
  2. ZORYVE [Suspect]
     Active Substance: ROFLUMILAST
     Indication: Pruritus

REACTIONS (3)
  - Pruritus [Unknown]
  - Skin burning sensation [Unknown]
  - Off label use [Unknown]
